FAERS Safety Report 4399300-3 (Version None)
Quarter: 2004Q3

REPORT INFORMATION
  Report Type: 
  Country: None (occurrence: None)
  Receive Date: 20040712
  Receipt Date: 20040621
  Transmission Date: 20050211
  Serious: Yes (Hospitalization)
  Sender: FDA-Public Use
  Company Number: 6009358

PATIENT
  Age: 69 Year
  Sex: Female

DRUGS (4)
  1. LEVOTHYROXINE SODIUM [Suspect]
     Indication: HYPOTHYROIDISM
     Route: 048
     Dates: start: 19990105
  2. SOPROL (TABLETS) (BISOPROLOL FUMARATE) [Suspect]
     Indication: HYPERTENSION
     Route: 048
  3. LIPANOR (CAPSULES ) (CIPROFIBRATE) [Suspect]
     Indication: HYPERCHOLESTEROLAEMIA
     Route: 048
  4. ZESTORETIC [Suspect]
     Indication: HYPERTENSION
     Route: 048

REACTIONS (1)
  - EOSINOPHIL COUNT INCREASED [None]
